FAERS Safety Report 22598873 (Version 2)
Quarter: 2023Q2

REPORT INFORMATION
  Report Type: Spontaneous
  Country: GB (occurrence: GB)
  Receive Date: 20230614
  Receipt Date: 20230627
  Transmission Date: 20230722
  Serious: Yes (Other)
  Sender: FDA-Public Use
  Company Number: GB-MHRA-TPP17819500C8499786YC1685709333695

PATIENT
  Age: 67 Year
  Sex: Male
  Weight: 46 kg

DRUGS (19)
  1. AMOXICILLIN\CLAVULANATE POTASSIUM [Suspect]
     Active Substance: AMOXICILLIN\CLAVULANATE POTASSIUM
     Indication: Ill-defined disorder
     Dosage: UNK
     Route: 065
     Dates: start: 20230529
  2. ASPIRIN [Concomitant]
     Active Substance: ASPIRIN
     Indication: Ill-defined disorder
     Dosage: 1 DOSAGE FORM, ONCE A DAY (TAKE ONE DAILY)
     Route: 065
     Dates: start: 20220923
  3. ATORVASTATIN [Concomitant]
     Active Substance: ATORVASTATIN
     Indication: Ill-defined disorder
     Dosage: 1 DOSAGE FORM, ONCE A DAY (TAKE ONE DAILY)
     Route: 065
     Dates: start: 20220923
  4. BISOPROLOL [Concomitant]
     Active Substance: BISOPROLOL
     Indication: Ill-defined disorder
     Dosage: 1 DOSAGE FORM, ONCE A DAY (TAKE ONE DAILY)
     Route: 065
     Dates: start: 20220923
  5. CIPROFLOXACIN [Concomitant]
     Active Substance: CIPROFLOXACIN
     Indication: Ill-defined disorder
     Dosage: 1 DOSAGE FORM, TWO TIMES A DAY
     Route: 065
     Dates: start: 20230523, end: 20230530
  6. AMOXICILLIN\CLAVULANATE POTASSIUM [Concomitant]
     Active Substance: AMOXICILLIN\CLAVULANATE POTASSIUM
     Indication: Ill-defined disorder
     Dosage: 1 DOSAGE FORM, 3 TIMES A DAY (TAKE ONE 3 TIMES/DAY)
     Route: 065
     Dates: start: 20230529
  7. DIHYDROCODEINE [Concomitant]
     Active Substance: DIHYDROCODEINE
     Indication: Ill-defined disorder
     Dosage: 1 OR 2 UP TO 4 TIMES A DAY
     Route: 065
     Dates: start: 20220923
  8. ESCITALOPRAM [Concomitant]
     Active Substance: ESCITALOPRAM OXALATE
     Indication: Ill-defined disorder
     Dosage: 1 DOSAGE FORM, ONCE A DAY (TAKE ONE TABLET DAILY)
     Route: 065
     Dates: start: 20230328
  9. FINASTERIDE [Concomitant]
     Active Substance: FINASTERIDE
     Indication: Ill-defined disorder
     Dosage: FOR PROSTATE
     Route: 065
     Dates: start: 20220923
  10. NITROGLYCERIN [Concomitant]
     Active Substance: NITROGLYCERIN
     Indication: Ill-defined disorder
     Dosage: ONE TO TWO DOSES UNDER THE TONGUE, THEN CLOSE M...
     Route: 060
     Dates: start: 20220923
  11. HYDROCORTISONE [Concomitant]
     Active Substance: HYDROCORTISONE
     Indication: Ill-defined disorder
     Dosage: APPLY
     Route: 065
     Dates: start: 20230509, end: 20230523
  12. ISOSORBIDE MONONITRATE [Concomitant]
     Active Substance: ISOSORBIDE MONONITRATE
     Indication: Ill-defined disorder
     Dosage: 1 DOSAGE FORM, ONCE A DAY (TAKE ONE DAILY)
     Route: 065
     Dates: start: 20220923
  13. LACTULOSE [Concomitant]
     Active Substance: LACTULOSE
     Indication: Ill-defined disorder
     Dosage: 15 MILLILITER, TWO TIMES A DAY
     Route: 065
     Dates: start: 20220923
  14. LANSOPRAZOLE [Concomitant]
     Active Substance: LANSOPRAZOLE
     Indication: Ill-defined disorder
     Dosage: 1 DOSAGE FORM, ONCE A DAY (TAKE ONE ONCE DAILY)
     Route: 065
     Dates: start: 20220923
  15. NICORANDIL [Concomitant]
     Active Substance: NICORANDIL
     Indication: Ill-defined disorder
     Dosage: 1 DOSAGE FORM, TWO TIMES A DAY (TAKE ONE TWICE DAILY)
     Route: 065
     Dates: start: 20220923
  16. NITROFURANTOIN [Concomitant]
     Active Substance: NITROFURANTOIN
     Indication: Ill-defined disorder
     Dosage: 1 DOSAGE FORM, TWO TIMES A DAY (TAKE ONE TWICE DAILY)
     Route: 065
     Dates: start: 20230509
  17. PREGABALIN [Concomitant]
     Active Substance: PREGABALIN
     Indication: Ill-defined disorder
     Dosage: 1 DOSAGE FORM, TWO TIMES A DAY (TAKE ONE TWICE DAILY)
     Route: 065
     Dates: start: 20230412, end: 20230426
  18. TAMSULOSIN HYDROCHLORIDE [Concomitant]
     Active Substance: TAMSULOSIN HYDROCHLORIDE
     Indication: Ill-defined disorder
     Dosage: 1 DOSAGE FORM, ONCE A DAY (NIGHT)
     Route: 065
     Dates: start: 20220923
  19. ZOPICLONE [Concomitant]
     Active Substance: ZOPICLONE
     Indication: Ill-defined disorder
     Dosage: 1 DOSAGE FORM, AS NECESSARY ((AT NIGHT))
     Route: 065
     Dates: start: 20220923

REACTIONS (1)
  - Dyspnoea [Recovered/Resolved]

NARRATIVE: CASE EVENT DATE: 20230529
